APPROVED DRUG PRODUCT: HYDROCODONE BITARTRATE AND ACETAMINOPHEN
Active Ingredient: ACETAMINOPHEN; HYDROCODONE BITARTRATE
Strength: 325MG;10MG
Dosage Form/Route: TABLET;ORAL
Application: A040400 | Product #001 | TE Code: AA
Applicant: SPECGX LLC
Approved: Jul 26, 2000 | RLD: No | RS: Yes | Type: RX